FAERS Safety Report 19189118 (Version 2)
Quarter: 2021Q3

REPORT INFORMATION
  Report Type: Spontaneous
  Country: US (occurrence: US)
  Receive Date: 20210428
  Receipt Date: 20210729
  Transmission Date: 20211014
  Serious: No
  Sender: FDA-Public Use
  Company Number: US-ULTRAGENYX PHARMACEUTICAL INC.-US-UGNX-21-00073

PATIENT
  Sex: Male
  Weight: 19.95 kg

DRUGS (2)
  1. DOJOLVI [Suspect]
     Active Substance: TRIHEPTANOIN
     Indication: BLOOD PYRUVIC ACID ABNORMAL
     Dates: start: 2017
  2. DOJOLVI [Suspect]
     Active Substance: TRIHEPTANOIN
     Indication: METABOLIC DISORDER
     Route: 048

REACTIONS (1)
  - Weight increased [Unknown]
